FAERS Safety Report 7127041-8 (Version None)
Quarter: 2010Q4

REPORT INFORMATION
  Report Type: 
  Country: None (occurrence: None)
  Receive Date: 20101129
  Receipt Date: 20091230
  Transmission Date: 20110411
  Serious: Yes (Other)
  Sender: FDA-Public Use
  Company Number: US-PFIZER INC-2009316362

PATIENT

DRUGS (4)
  1. VIAGRA [Suspect]
     Indication: PENIS DISORDER
     Route: 048
     Dates: start: 20091230
  2. LIPITOR [Concomitant]
     Indication: CARDIAC DISORDER
     Dosage: 250 MG, 2X/DAY
     Route: 048
     Dates: start: 20060101
  3. OXYCODONE HCL [Concomitant]
     Indication: DRUG ABUSE
     Dosage: 3000 MG, 1X/DAY
  4. MORPHINE [Concomitant]
     Indication: DRUG ABUSE
     Dosage: UNK

REACTIONS (3)
  - ERECTION INCREASED [None]
  - MEDICATION ERROR [None]
  - PENILE PAIN [None]
